FAERS Safety Report 15563748 (Version 4)
Quarter: 2018Q4

REPORT INFORMATION
  Report Type: Spontaneous
  Country: US (occurrence: US)
  Receive Date: 20181029
  Receipt Date: 20181211
  Transmission Date: 20190205
  Serious: Yes (Hospitalization)
  Sender: FDA-Public Use
  Company Number: US-ASTRAZENECA-2018SF39962

PATIENT
  Age: 22741 Day
  Sex: Male
  Weight: 90.7 kg

DRUGS (5)
  1. BYDUREON BCISE [Suspect]
     Active Substance: EXENATIDE
     Route: 058
  2. METFORMIN [Concomitant]
     Active Substance: METFORMIN HYDROCHLORIDE
  3. LISINOPRIL. [Suspect]
     Active Substance: LISINOPRIL
     Indication: CARDIAC DISORDER
     Route: 048
     Dates: end: 201704
  4. LEVOFLOXACIN. [Concomitant]
     Active Substance: LEVOFLOXACIN
     Indication: PNEUMONIA
     Route: 048
  5. LOSARTAN. [Concomitant]
     Active Substance: LOSARTAN

REACTIONS (14)
  - Blood pressure abnormal [Unknown]
  - Drug effect delayed [Unknown]
  - Underdose [Unknown]
  - Pneumonia [Unknown]
  - Injection site haemorrhage [Unknown]
  - Cardiac disorder [Unknown]
  - Hypoacusis [Unknown]
  - Device leakage [Unknown]
  - Product dose omission [Unknown]
  - Diabetes mellitus [Unknown]
  - Blood potassium decreased [Unknown]
  - Injection site mass [Unknown]
  - Musculoskeletal discomfort [Unknown]
  - Wrong technique in product usage process [Unknown]

NARRATIVE: CASE EVENT DATE: 20181019
